FAERS Safety Report 8588903-8 (Version None)
Quarter: 2012Q3

REPORT INFORMATION
  Report Type: 
  Country: None (occurrence: None)
  Receive Date: 20120813
  Receipt Date: 20120803
  Transmission Date: 20120928
  Serious: Yes (Other)
  Sender: FDA-Public Use
  Company Number: JP-PFIZER INC-2012194331

PATIENT
  Age: 58 Year
  Sex: Male

DRUGS (5)
  1. OMEPRAZOLE [Concomitant]
     Dosage: UNK
  2. AMIODARONE HCL [Suspect]
     Dosage: UNK
     Route: 048
  3. AMIODARONE [Suspect]
     Indication: PRODUCT USED FOR UNKNOWN INDICATION
     Dosage: 600 MG DAILY
     Route: 042
  4. MEROPENEM [Concomitant]
     Dosage: UNK
  5. FUNGUARD [Concomitant]
     Dosage: UNK

REACTIONS (1)
  - JAUNDICE [None]
